FAERS Safety Report 6978973-2 (Version None)
Quarter: 2010Q3

REPORT INFORMATION
  Report Type: 
  Country: None (occurrence: None)
  Receive Date: 20100913
  Receipt Date: 20100903
  Transmission Date: 20110219
  Serious: Yes (Other)
  Sender: FDA-Public Use
  Company Number: US-ASTRAZENECA-2010SE41632

PATIENT
  Age: 30 Year
  Sex: Female

DRUGS (3)
  1. SEROQUEL XR [Suspect]
     Indication: MAJOR DEPRESSION
     Route: 048
  2. SEROQUEL XR [Suspect]
     Route: 048
  3. CELEXA [Concomitant]
     Indication: MAJOR DEPRESSION

REACTIONS (2)
  - LOSS OF CONSCIOUSNESS [None]
  - ORTHOSTATIC HYPOTENSION [None]
